FAERS Safety Report 15427237 (Version 1)
Quarter: 2018Q3

REPORT INFORMATION
  Report Type: Report from Study
  Country: BR (occurrence: BR)
  Receive Date: 20180925
  Receipt Date: 20180925
  Transmission Date: 20181010
  Serious: Yes (Other)
  Sender: FDA-Public Use
  Company Number: PHHY2018BR103387

PATIENT
  Sex: Female
  Weight: 87 kg

DRUGS (8)
  1. OMEPRAZOL [Suspect]
     Active Substance: OMEPRAZOLE
     Indication: ORAL DISCOMFORT
  2. OMEPRAZOL [Suspect]
     Active Substance: OMEPRAZOLE
     Indication: HYPERCHLORHYDRIA
  3. OMEPRAZOL [Suspect]
     Active Substance: OMEPRAZOLE
     Indication: GASTROINTESTINAL DISORDER
     Dosage: 20 MG, (2 IN THE MORNING, 2 IN THE EVENING)
     Route: 048
  4. SYSTANE (HYPROMELLOSE 2910 (4000 MPA.S)) [Suspect]
     Active Substance: HYPROMELLOSE 2910 (4000 MPA.S)
     Indication: PRODUCT USED FOR UNKNOWN INDICATION
     Dosage: 2 GTT, QID
     Route: 047
     Dates: start: 201808
  5. OMEPRAZOL [Suspect]
     Active Substance: OMEPRAZOLE
     Indication: GASTROOESOPHAGEAL REFLUX DISEASE
  6. OMEPRAZOL [Suspect]
     Active Substance: OMEPRAZOLE
     Indication: ABDOMINAL DISCOMFORT
  7. OMEPRAZOL [Suspect]
     Active Substance: OMEPRAZOLE
     Indication: RENAL ANEURYSM
  8. OMEPRAZOL [Suspect]
     Active Substance: OMEPRAZOLE
     Indication: TONGUE DISCOMFORT

REACTIONS (21)
  - Renal aneurysm [Unknown]
  - Visual impairment [Not Recovered/Not Resolved]
  - Memory impairment [Unknown]
  - Joint dislocation [Not Recovered/Not Resolved]
  - Hypoacusis [Unknown]
  - Cataract [Unknown]
  - Intestinal cyst [Unknown]
  - Cardiac disorder [Unknown]
  - Vitreous floaters [Not Recovered/Not Resolved]
  - Product use in unapproved indication [Unknown]
  - Retinal disorder [Not Recovered/Not Resolved]
  - Anxiety [Unknown]
  - General physical health deterioration [Unknown]
  - Dizziness [Unknown]
  - Condition aggravated [Unknown]
  - Nervousness [Unknown]
  - Headache [Unknown]
  - Labyrinthitis [Not Recovered/Not Resolved]
  - Gastric polyps [Unknown]
  - Fatigue [Unknown]
  - Vision blurred [Not Recovered/Not Resolved]

NARRATIVE: CASE EVENT DATE: 2013
